FAERS Safety Report 10006131 (Version 2)
Quarter: 2014Q2

REPORT INFORMATION
  Report Type: Spontaneous
  Country: GB (occurrence: GB)
  Receive Date: 20140313
  Receipt Date: 20140528
  Transmission Date: 20141212
  Serious: Yes (Other)
  Sender: FDA-Public Use
  Company Number: GB-UCBSA-114403

PATIENT
  Age: 72 Year
  Sex: Female

DRUGS (3)
  1. NEUPRO [Suspect]
     Indication: PARKINSON^S DISEASE
     Dosage: UP TO 8 MG, 1 PATCH
     Route: 062
  2. NEUPRO [Suspect]
     Indication: PARKINSON^S DISEASE
     Dosage: 6 MG PATCH
  3. SINEMET [Concomitant]

REACTIONS (3)
  - Tremor [Unknown]
  - Drug ineffective [Unknown]
  - Cardiac pacemaker insertion [Unknown]
